FAERS Safety Report 12297182 (Version 2)
Quarter: 2017Q1

REPORT INFORMATION
  Report Type: Spontaneous
  Country: FR (occurrence: FR)
  Receive Date: 20160422
  Receipt Date: 20170313
  Transmission Date: 20170428
  Serious: Yes (Death, Hospitalization)
  Sender: FDA-Public Use
  Company Number: FR-ABBVIE-12P-056-1017395-00

PATIENT
  Age: 32 Year
  Sex: Male

DRUGS (13)
  1. TRANXENE T-TAB [Concomitant]
     Active Substance: CLORAZEPATE DIPOTASSIUM
     Indication: PRODUCT USED FOR UNKNOWN INDICATION
     Route: 048
  2. OXYGEN THERAPY [Concomitant]
     Active Substance: OXYGEN
     Indication: PRODUCT USED FOR UNKNOWN INDICATION
     Route: 048
  3. DEPAKOTE [Concomitant]
     Active Substance: DIVALPROEX SODIUM
     Indication: PRODUCT USED FOR UNKNOWN INDICATION
     Route: 048
  4. TERCIAN [Concomitant]
     Active Substance: CYAMEMAZINE
     Indication: PRODUCT USED FOR UNKNOWN INDICATION
     Route: 048
  5. DOMPERIDONE [Concomitant]
     Active Substance: DOMPERIDONE
     Indication: PRODUCT USED FOR UNKNOWN INDICATION
     Route: 048
  6. VOGALENE [Concomitant]
     Active Substance: METOPIMAZINE
     Indication: PRODUCT USED FOR UNKNOWN INDICATION
     Route: 048
  7. EPINEPHRINE. [Concomitant]
     Active Substance: EPINEPHRINE
     Indication: PRODUCT USED FOR UNKNOWN INDICATION
     Route: 048
  8. ZECLAR [Suspect]
     Active Substance: CLARITHROMYCIN
     Indication: ACNE
  9. EPINEPHRINE. [Concomitant]
     Active Substance: EPINEPHRINE
     Indication: PRODUCT USED FOR UNKNOWN INDICATION
     Route: 048
  10. OXYGEN THERAPY [Concomitant]
     Active Substance: OXYGEN
     Indication: PRODUCT USED FOR UNKNOWN INDICATION
     Route: 048
  11. ZECLAR [Suspect]
     Active Substance: CLARITHROMYCIN
     Indication: SKIN INFECTION
     Route: 048
     Dates: start: 20040224, end: 20040225
  12. FORLAX [Concomitant]
     Active Substance: POLYETHYLENE GLYCOL 4000
     Indication: PRODUCT USED FOR UNKNOWN INDICATION
     Route: 048
  13. PANFUREX [Concomitant]
     Active Substance: NIFUROXAZIDE
     Indication: PRODUCT USED FOR UNKNOWN INDICATION
     Route: 048

REACTIONS (19)
  - Cardio-respiratory arrest [Unknown]
  - Poor quality sleep [Unknown]
  - Hyperhidrosis [Unknown]
  - Vomiting [Fatal]
  - Gastroenteritis [Unknown]
  - General physical health deterioration [Unknown]
  - Gastric perforation [Unknown]
  - Gastric ulcer [Unknown]
  - Pallor [Unknown]
  - Drug hypersensitivity [Fatal]
  - Peritonitis [Unknown]
  - Skin discolouration [Unknown]
  - Hypotension [Unknown]
  - Gastrointestinal perforation [Unknown]
  - Acute respiratory distress syndrome [Fatal]
  - Nausea [Fatal]
  - Cardiogenic shock [Unknown]
  - Pneumoperitoneum [Fatal]
  - Abdominal discomfort [Unknown]

NARRATIVE: CASE EVENT DATE: 200402
